FAERS Safety Report 8817119 (Version 1)
Quarter: 2012Q4

REPORT INFORMATION
  Report Type: Spontaneous
  Country: US (occurrence: None)
  Receive Date: 20121003
  Receipt Date: 20121003
  Transmission Date: 20130627
  Serious: Yes (Life-Threatening)
  Sender: FDA-Public Use
  Company Number: None

PATIENT
  Age: 55 Year
  Sex: Female
  Weight: 60.33 kg

DRUGS (1)
  1. CYMBALTA [Suspect]

REACTIONS (4)
  - Swelling [None]
  - Blister [None]
  - Stomatitis [None]
  - Staphylococcal infection [None]
